FAERS Safety Report 23634253 (Version 7)
Quarter: 2024Q4

REPORT INFORMATION
  Report Type: Spontaneous
  Country: US (occurrence: US)
  Receive Date: 20240314
  Receipt Date: 20241031
  Transmission Date: 20250115
  Serious: Yes (Death, Hospitalization, Other)
  Sender: GILEAD
  Company Number: US-GILEAD-2024-0665633

PATIENT
  Sex: Female
  Weight: 38.1 kg

DRUGS (23)
  1. YESCARTA [Suspect]
     Active Substance: AXICABTAGENE CILOLEUCEL
     Indication: Diffuse large B-cell lymphoma
     Dosage: UNK
     Route: 065
     Dates: start: 20240219, end: 20240219
  2. FLUDARABINE [Suspect]
     Active Substance: FLUDARABINE PHOSPHATE
     Indication: Lymphodepletion
     Dosage: UNK
     Route: 065
     Dates: start: 20240214, end: 20240217
  3. CYCLOPHOSPHAMIDE [Suspect]
     Active Substance: CYCLOPHOSPHAMIDE
     Indication: Lymphodepletion
     Dosage: UNK
     Route: 065
     Dates: start: 20240214, end: 20240217
  4. DILAUDID [Suspect]
     Active Substance: HYDROMORPHONE HYDROCHLORIDE
     Indication: Product used for unknown indication
     Dosage: UNK
     Route: 042
  5. AMINO ACIDS\CARBOHYDRATES\MINERALS\VITAMINS [Suspect]
     Active Substance: AMINO ACIDS\CARBOHYDRATES\MINERALS\VITAMINS
     Indication: Malnutrition
     Dosage: UNK
     Route: 042
     Dates: start: 20240313, end: 20240316
  6. AMINO ACIDS\CARBOHYDRATES\MINERALS\VITAMINS [Suspect]
     Active Substance: AMINO ACIDS\CARBOHYDRATES\MINERALS\VITAMINS
     Dosage: UNK
     Route: 042
     Dates: start: 20240318, end: 20240323
  7. AMINO ACIDS\CARBOHYDRATES\MINERALS\VITAMINS [Suspect]
     Active Substance: AMINO ACIDS\CARBOHYDRATES\MINERALS\VITAMINS
     Dosage: UNK
     Route: 042
     Dates: start: 20240325, end: 20240327
  8. SOLU-MEDROL [Suspect]
     Active Substance: METHYLPREDNISOLONE SODIUM SUCCINATE
     Indication: Immune effector cell-associated neurotoxicity syndrome
     Dosage: 1 G
     Route: 065
     Dates: start: 20240221
  9. ACYCLOVIR [Concomitant]
     Active Substance: ACYCLOVIR
  10. POSACONAZOLE [Concomitant]
     Active Substance: POSACONAZOLE
  11. HYDROCORTISONE [Concomitant]
     Active Substance: HYDROCORTISONE
  12. FILGRASTIM [Concomitant]
     Active Substance: FILGRASTIM
  13. OXYBUTYNIN [Concomitant]
     Active Substance: OXYBUTYNIN
  14. MINERALS\VITAMINS [Concomitant]
     Active Substance: MINERALS\VITAMINS
  15. OLANZAPINE [Concomitant]
     Active Substance: OLANZAPINE
  16. MIDODRINE [Concomitant]
     Active Substance: MIDODRINE
  17. ONDANSETRON [Concomitant]
     Active Substance: ONDANSETRON
  18. CALCIUM CARBONATE\MAGNESIUM CARBONATE [Concomitant]
     Active Substance: CALCIUM CARBONATE\MAGNESIUM CARBONATE
  19. SUCRALFATE [Concomitant]
     Active Substance: SUCRALFATE
  20. SIMETHICONE (DIMETHICONE) [Concomitant]
     Active Substance: DIMETHICONE
  21. DICYCLOMINE [Concomitant]
     Active Substance: DICYCLOMINE HYDROCHLORIDE
  22. XTAMPZA ER [Concomitant]
     Active Substance: OXYCODONE
  23. OMEPRAZOLE [Concomitant]
     Active Substance: OMEPRAZOLE

REACTIONS (31)
  - Disease progression [Fatal]
  - Gastrointestinal haemorrhage [Fatal]
  - Failure to thrive [Fatal]
  - Sepsis [Fatal]
  - Cytomegalovirus viraemia [Recovering/Resolving]
  - Clostridium difficile infection [Recovered/Resolved]
  - Escherichia bacteraemia [Recovered/Resolved]
  - BK virus infection [Recovered/Resolved]
  - Azotaemia [Recovered/Resolved]
  - Septic shock [Recovered/Resolved]
  - Haematochezia [Recovered/Resolved]
  - Gastrointestinal haemorrhage [Recovered/Resolved]
  - Shock haemorrhagic [Unknown]
  - Refeeding syndrome [Unknown]
  - Decubitus ulcer [Recovering/Resolving]
  - Hyperbilirubinaemia [Recovered/Resolved]
  - Pancytopenia [Unknown]
  - Ascites [Recovering/Resolving]
  - Adrenal insufficiency [Unknown]
  - Pleural effusion [Recovering/Resolving]
  - Blood immunoglobulin G decreased [Unknown]
  - Hypervolaemia [Recovering/Resolving]
  - Toxic encephalopathy [Unknown]
  - Febrile neutropenia [Recovered/Resolved]
  - Mental status changes [Recovered/Resolved]
  - Delirium [Recovered/Resolved]
  - Malaise [Not Recovered/Not Resolved]
  - Immune effector cell-associated neurotoxicity syndrome [Recovered/Resolved]
  - Cytokine release syndrome [Recovered/Resolved]
  - Cough [Unknown]
  - Hyperglycaemia [Recovered/Resolved]

NARRATIVE: CASE EVENT DATE: 20240101
